FAERS Safety Report 11846691 (Version 1)
Quarter: 2015Q4

REPORT INFORMATION
  Report Type: Spontaneous
  Country: US (occurrence: US)
  Receive Date: 20151217
  Receipt Date: 20151217
  Transmission Date: 20160305
  Serious: No
  Sender: FDA-Public Use
  Company Number: US-ROCHE-1507757

PATIENT
  Sex: Female

DRUGS (1)
  1. TAMIFLU [Suspect]
     Active Substance: OSELTAMIVIR PHOSPHATE
     Indication: PRODUCT USED FOR UNKNOWN INDICATION
     Route: 048

REACTIONS (8)
  - Pyrexia [Recovered/Resolved]
  - Feeling drunk [Recovered/Resolved]
  - Feeling abnormal [Recovered/Resolved]
  - Product quality issue [Unknown]
  - Dizziness [Recovered/Resolved]
  - Feeling abnormal [Unknown]
  - Headache [Recovered/Resolved]
  - Product taste abnormal [Recovered/Resolved]
